FAERS Safety Report 8582412-8 (Version None)
Quarter: 2012Q3

REPORT INFORMATION
  Report Type: 
  Country: None (occurrence: None)
  Receive Date: 20120809
  Receipt Date: 20120731
  Transmission Date: 20120928
  Serious: Yes (Hospitalization)
  Sender: FDA-Public Use
  Company Number: JP-GLAXOSMITHKLINE-B0807955A

PATIENT
  Sex: Female
  Weight: 46 kg

DRUGS (5)
  1. HYCAMTIN [Suspect]
     Indication: MALIGNANT PERITONEAL NEOPLASM
     Dosage: 1.2MGM2 PER DAY
     Route: 042
     Dates: start: 20120524, end: 20120528
  2. TRANSFUSION [Concomitant]
     Route: 065
     Dates: start: 20081202, end: 20120608
  3. PACLITAXEL [Concomitant]
     Dates: start: 20090522, end: 20120418
  4. GEMCITABINE HYDROCHLORIDE [Concomitant]
  5. CARBOPLATIN [Concomitant]
     Dates: start: 20080916, end: 20120418

REACTIONS (4)
  - ANAEMIA [None]
  - PLATELET COUNT DECREASED [None]
  - NEUTROPHIL COUNT DECREASED [None]
  - C-REACTIVE PROTEIN INCREASED [None]
